FAERS Safety Report 18438165 (Version 1)
Quarter: 2020Q4

REPORT INFORMATION
  Report Type: Spontaneous
  Country: US (occurrence: US)
  Receive Date: 20201028
  Receipt Date: 20201028
  Transmission Date: 20210114
  Serious: Yes (Hospitalization, Other)
  Sender: FDA-Public Use
  Company Number: US-PURDUE-USA-2020-0172647

PATIENT
  Sex: Male

DRUGS (1)
  1. HYDROCODONE BITARTRATE AND ACETAMINOPHEN [Suspect]
     Active Substance: ACETAMINOPHEN\HYDROCODONE BITARTRATE
     Indication: ROAD TRAFFIC ACCIDENT
     Dosage: UNK
     Route: 048

REACTIONS (13)
  - Emotional distress [Unknown]
  - Anxiety [Unknown]
  - Panic attack [Unknown]
  - Anger [Unknown]
  - Illness [Unknown]
  - Drug withdrawal syndrome [Unknown]
  - Surgery [Unknown]
  - Joint injury [Unknown]
  - Vomiting [Unknown]
  - Diarrhoea [Unknown]
  - Drug dependence [Unknown]
  - Depression [Unknown]
  - Back injury [Unknown]
